FAERS Safety Report 4996012-X (Version None)
Quarter: 2006Q2

REPORT INFORMATION
  Report Type: 
  Country: None (occurrence: None)
  Receive Date: 20060508
  Receipt Date: 20060117
  Transmission Date: 20061013
  Serious: Yes (Hospitalization, Other)
  Sender: FDA-Public Use
  Company Number: US-MERCK-0601USA01968

PATIENT
  Age: 56 Year
  Sex: Female
  Weight: 113 kg

DRUGS (12)
  1. VIOXX [Suspect]
     Indication: ARTHRITIS
     Route: 048
     Dates: start: 20000306, end: 20040818
  2. CLONAZEPAM [Concomitant]
     Route: 065
  3. ULTRACET [Concomitant]
     Route: 065
  4. LIPITOR [Concomitant]
     Route: 065
  5. ZOLOFT [Concomitant]
     Route: 065
  6. TIZANIDINE HYDROCHLORIDE [Concomitant]
     Route: 065
  7. NEXIUM [Concomitant]
     Route: 065
  8. LEVOTHROID [Concomitant]
     Route: 065
  9. HYDROXYCHLOROQUINE SULFATE [Concomitant]
     Route: 065
  10. ALLEGRA [Concomitant]
     Route: 065
  11. FLONASE [Concomitant]
     Route: 065
  12. [THERAPY UNSPECIFIED] [Concomitant]
     Route: 065

REACTIONS (16)
  - ANXIETY [None]
  - BRONCHITIS [None]
  - CAROTID ARTERY STENOSIS [None]
  - CATARACT [None]
  - CEREBROVASCULAR ACCIDENT [None]
  - CHRONIC OBSTRUCTIVE PULMONARY DISEASE [None]
  - CORONARY ARTERY DISEASE [None]
  - DIABETES MELLITUS [None]
  - HYPERHOMOCYSTEINAEMIA [None]
  - INTERVERTEBRAL DISC PROTRUSION [None]
  - LUNG DISORDER [None]
  - OEDEMA PERIPHERAL [None]
  - OXYGEN SATURATION DECREASED [None]
  - SLEEP APNOEA SYNDROME [None]
  - STRESS [None]
  - TRANSIENT ISCHAEMIC ATTACK [None]
